FAERS Safety Report 6215961-8 (Version None)
Quarter: 2009Q2

REPORT INFORMATION
  Report Type: 
  Country: None (occurrence: None)
  Receive Date: 20090605
  Receipt Date: 20090525
  Transmission Date: 20091009
  Serious: Yes (Hospitalization, Other)
  Sender: FDA-Public Use
  Company Number: JP-JNJFOC-20090600295

PATIENT
  Sex: Male
  Weight: 65 kg

DRUGS (31)
  1. REMICADE [Suspect]
     Route: 042
  2. REMICADE [Suspect]
     Route: 042
  3. REMICADE [Suspect]
     Route: 042
  4. REMICADE [Suspect]
     Route: 042
  5. REMICADE [Suspect]
     Route: 042
  6. REMICADE [Suspect]
     Route: 042
  7. REMICADE [Suspect]
     Route: 042
  8. REMICADE [Suspect]
     Indication: BEHCET'S SYNDROME
     Route: 042
  9. COLCHICINE [Suspect]
     Route: 048
  10. COLCHICINE [Suspect]
     Indication: BEHCET'S SYNDROME
     Route: 048
  11. PREDNISOLONE [Concomitant]
     Route: 048
  12. PREDNISOLONE [Concomitant]
     Route: 048
  13. PREDNISOLONE [Concomitant]
     Route: 048
  14. PREDNISOLONE [Concomitant]
     Route: 048
  15. PREDNISOLONE [Concomitant]
     Route: 048
  16. PREDNISOLONE [Concomitant]
     Indication: BEHCET'S SYNDROME
     Route: 048
  17. MYDRIN-P [Concomitant]
     Indication: BEHCET'S SYNDROME
     Route: 031
  18. ROCALTROL [Concomitant]
     Indication: OSTEOPOROSIS
     Route: 048
  19. LENDORMIN [Concomitant]
     Indication: INSOMNIA
     Route: 048
  20. LAC-B [Concomitant]
     Indication: DIARRHOEA
     Route: 048
  21. TAKEPRON [Concomitant]
     Indication: REFLUX OESOPHAGITIS
     Route: 048
  22. GASMOTIN [Concomitant]
     Indication: REFLUX OESOPHAGITIS
     Route: 048
  23. SUCRALFATE [Concomitant]
     Indication: REFLUX OESOPHAGITIS
     Route: 048
  24. CRAVIT [Concomitant]
     Indication: SEASONAL ALLERGY
     Route: 031
  25. DICLOD [Concomitant]
     Indication: SEASONAL ALLERGY
     Route: 031
  26. RINDERON A [Concomitant]
     Indication: SEASONAL ALLERGY
     Route: 031
  27. SANCOBA [Concomitant]
     Indication: SEASONAL ALLERGY
     Route: 031
  28. EBASTEL [Concomitant]
     Indication: SEASONAL ALLERGY
     Route: 048
  29. KENALOG [Concomitant]
     Indication: BEHCET'S SYNDROME
  30. ISODINE [Concomitant]
     Indication: BEHCET'S SYNDROME
  31. UREPEARL [Concomitant]
     Indication: DRY SKIN

REACTIONS (4)
  - BLOOD CREATINE PHOSPHOKINASE INCREASED [None]
  - CATARACT [None]
  - CYTOMEGALOVIRUS INFECTION [None]
  - HEPATIC FUNCTION ABNORMAL [None]
